FAERS Safety Report 21669488 (Version 2)
Quarter: 2022Q4

REPORT INFORMATION
  Report Type: Spontaneous
  Country: US (occurrence: US)
  Receive Date: 20221201
  Receipt Date: 20221202
  Transmission Date: 20230112
  Serious: Yes (Hospitalization, Other)
  Sender: FDA-Public Use
  Company Number: US-PFIZER INC-PV202200112553

PATIENT
  Age: 29 Year
  Sex: Male

DRUGS (1)
  1. KETAMINE HYDROCHLORIDE [Suspect]
     Active Substance: KETAMINE HYDROCHLORIDE
     Indication: Intentional product misuse
     Dosage: 8 G, DAILY

REACTIONS (7)
  - Intentional product misuse [Recovering/Resolving]
  - Cystitis haemorrhagic [Recovering/Resolving]
  - Disease recurrence [Recovering/Resolving]
  - Urinary tract disorder [Unknown]
  - Acute kidney injury [Unknown]
  - Liver injury [Recovering/Resolving]
  - Hyponatraemia [Unknown]
